FAERS Safety Report 9284106 (Version 3)
Quarter: 2013Q3

REPORT INFORMATION
  Report Type: Spontaneous
  Country: CO (occurrence: CO)
  Receive Date: 20130509
  Receipt Date: 20130709
  Transmission Date: 20140515
  Serious: Yes (Other)
  Sender: FDA-Public Use
  Company Number: CO-VERTEX PHARMACEUTICALS INC-2013-005860

PATIENT
  Age: 56 Year
  Sex: Female
  Weight: 67 kg

DRUGS (3)
  1. INCIVO [Suspect]
     Indication: HEPATITIS C
     Dosage: 375 MG, TID
     Route: 048
     Dates: start: 20130503
  2. INTERFERON [Concomitant]
     Indication: HEPATITIS C
     Dosage: DOSAGE FORM: AMPOULES
     Route: 058
     Dates: start: 20130503
  3. RIBAVIRIN [Concomitant]
     Indication: HEPATITIS C
     Dosage: DOSAGE FORM: TABLET
     Route: 048
     Dates: start: 20130503

REACTIONS (4)
  - Rash pustular [Recovered/Resolved]
  - Headache [Recovered/Resolved]
  - Malaise [Unknown]
  - Urticaria [Unknown]
